FAERS Safety Report 12390057 (Version 1)
Quarter: 2016Q2

REPORT INFORMATION
  Report Type: Spontaneous
  Country: US (occurrence: US)
  Receive Date: 20160520
  Receipt Date: 20160520
  Transmission Date: 20160815
  Serious: Yes (Other)
  Sender: FDA-Public Use
  Company Number: US-BAYER-2016-093596

PATIENT
  Age: 28 Year
  Sex: Female
  Weight: 92.97 kg

DRUGS (4)
  1. MIRENA [Suspect]
     Active Substance: LEVONORGESTREL
     Dosage: 20 MCG/24HR, CONT
     Route: 015
     Dates: start: 200805
  2. VANIQA [Concomitant]
     Active Substance: EFLORNITHINE HYDROCHLORIDE
  3. METFORMIN HCL [Concomitant]
     Active Substance: METFORMIN HYDROCHLORIDE
  4. MIRENA [Suspect]
     Active Substance: LEVONORGESTREL
     Dosage: 20 MCG/24HR, CONT
     Route: 015
     Dates: start: 20100910, end: 20140708

REACTIONS (5)
  - Embedded device [None]
  - Feeling abnormal [None]
  - Abdominal pain lower [None]
  - Device issue [None]
  - Anxiety [None]

NARRATIVE: CASE EVENT DATE: 201406
